FAERS Safety Report 18313134 (Version 1)
Quarter: 2020Q3

REPORT INFORMATION
  Report Type: Spontaneous
  Country: DE (occurrence: DE)
  Receive Date: 20200925
  Receipt Date: 20200925
  Transmission Date: 20201103
  Serious: Yes (Other)
  Sender: FDA-Public Use
  Company Number: DE-PFIZER INC-2020368166

PATIENT
  Sex: Female

DRUGS (2)
  1. CYKLOKAPRON [Suspect]
     Active Substance: TRANEXAMIC ACID
     Indication: COAGULOPATHY
  2. CYKLOKAPRON [Suspect]
     Active Substance: TRANEXAMIC ACID
     Indication: MENORRHAGIA
     Dosage: 1 DF, CYCLIC
     Dates: start: 202003

REACTIONS (8)
  - Arrhythmia [Unknown]
  - Dizziness [Unknown]
  - Myopathy [Unknown]
  - Muscular weakness [Recovering/Resolving]
  - Respiratory distress [Unknown]
  - Presyncope [Unknown]
  - Blood pressure decreased [Unknown]
  - Orthostatic intolerance [Recovering/Resolving]

NARRATIVE: CASE EVENT DATE: 202003
